FAERS Safety Report 24390279 (Version 1)
Quarter: 2024Q4

REPORT INFORMATION
  Report Type: Spontaneous
  Country: US (occurrence: US)
  Receive Date: 20241003
  Receipt Date: 20241003
  Transmission Date: 20250115
  Serious: No
  Sender: PIRAMAL
  Company Number: US-PCCINC-2024-PPL-000719

PATIENT

DRUGS (2)
  1. ROCURONIUM [Suspect]
     Active Substance: ROCURONIUM BROMIDE
     Indication: Product used for unknown indication
     Dosage: 50MG OF ROCURONIUM ON INDUCTION AND 20 MINUTES LATER RECEIVED ANOTHER 20MG.
  2. ROCURONIUM [Suspect]
     Active Substance: ROCURONIUM BROMIDE
     Dosage: 20 MINUTES LATER RECEIVED ANOTHER 20MG.

REACTIONS (2)
  - Cough [Unknown]
  - Drug effect less than expected [Unknown]
